FAERS Safety Report 9417152 (Version 1)
Quarter: 2013Q3

REPORT INFORMATION
  Report Type: Spontaneous
  Country: KR (occurrence: None)
  Receive Date: 20130722
  Receipt Date: 20130722
  Transmission Date: 20140515
  Serious: Yes (Hospitalization)
  Sender: FDA-Public Use
  Company Number: TPA2013A06688

PATIENT
  Age: 62 Year
  Sex: 0

DRUGS (2)
  1. COLCHICINE (COLCHICINE) [Suspect]
     Indication: GOUT
     Dosage: 2 FOR 3 DAYS
  2. CYCLOSPORINE (CICLOSPORIN) [Concomitant]

REACTIONS (7)
  - Pelvic pain [None]
  - Constipation [None]
  - Arrhythmia [None]
  - Confusional state [None]
  - Nausea [None]
  - Abdominal pain [None]
  - Fatigue [None]
